FAERS Safety Report 16110098 (Version 1)
Quarter: 2019Q1

REPORT INFORMATION
  Report Type: Spontaneous
  Country: GB (occurrence: GB)
  Receive Date: 20190325
  Receipt Date: 20190325
  Transmission Date: 20190418
  Serious: Yes (Life-Threatening, Hospitalization)
  Sender: FDA-Public Use
  Company Number: GB-ACCORD-115091

PATIENT
  Age: 79 Year
  Sex: Male

DRUGS (22)
  1. ACETYLSALICYLIC ACID [Suspect]
     Active Substance: ASPIRIN
     Indication: ANTIPLATELET THERAPY
     Route: 048
     Dates: end: 20181023
  2. BECLOMETASONE [Concomitant]
     Active Substance: BECLOMETHASONE DIPROPIONATE
  3. ALFACALCIDOL [Concomitant]
     Active Substance: ALFACALCIDOL
  4. SIMVASTATIN. [Concomitant]
     Active Substance: SIMVASTATIN
  5. OXYNORM [Concomitant]
     Active Substance: OXYCODONE HYDROCHLORIDE
     Dosage: 5MG/5ML
  6. CLOPIDOGREL [Suspect]
     Active Substance: CLOPIDOGREL BISULFATE
     Indication: ANTIPLATELET THERAPY
     Route: 048
     Dates: end: 20181023
  7. FLUCLOXACILLIN [Concomitant]
     Active Substance: FLUCLOXACILLIN
  8. TAMSULOSIN/TAMSULOSIN HYDROCHLORIDE [Concomitant]
  9. XARELTO [Suspect]
     Active Substance: RIVAROXABAN
     Indication: PRODUCT USED FOR UNKNOWN INDICATION
     Route: 048
     Dates: end: 20181023
  10. GABAPENTIN. [Concomitant]
     Active Substance: GABAPENTIN
  11. MACROGOL/MACROGOL STEARATE [Concomitant]
  12. DERMOL [Concomitant]
     Active Substance: BENZALKONIUM CHLORIDE\CHLORHEXIDINE HYDROCHLORIDE\ISOPROPYL MYRISTATE\PARAFFIN
  13. SALBUTAMOL [Concomitant]
     Active Substance: ALBUTEROL
     Route: 055
  14. TROSPIUM [Concomitant]
     Active Substance: TROSPIUM
  15. LANSOPRAZOLE. [Concomitant]
     Active Substance: LANSOPRAZOLE
  16. HYDRALAZINE [Concomitant]
     Active Substance: HYDRALAZINE HYDROCHLORIDE
  17. BETAMETHASONE. [Concomitant]
     Active Substance: BETAMETHASONE
  18. PIPERACILLIN SODIUM/TAZOBACTAM SODIUM [Concomitant]
     Dosage: PIPERACILLIN 4G / TAZOBACTAM 500MG
  19. PARACETAMOL [Concomitant]
     Active Substance: ACETAMINOPHEN
  20. BISOPROLOL [Concomitant]
     Active Substance: BISOPROLOL
  21. IVABRADINE/IVABRADINE HYDROCHLORIDE [Concomitant]
  22. OXYCODONE [Concomitant]
     Active Substance: OXYCODONE

REACTIONS (1)
  - Subdural haematoma [Not Recovered/Not Resolved]
